FAERS Safety Report 10879197 (Version 1)
Quarter: 2015Q1

REPORT INFORMATION
  Report Type: Spontaneous
  Country: US (occurrence: None)
  Receive Date: 20150224
  Receipt Date: 20150224
  Transmission Date: 20150721
  Serious: No
  Sender: FDA-Public Use
  Company Number: None

PATIENT

DRUGS (1)
  1. FENTANYL CITRATE INJECTION, USP [Suspect]
     Active Substance: FENTANYL CITRATE
     Dosage: 0.05MG/ML, 2ML AMPUL, 10 AMPULS IN A SHELF-PACK

REACTIONS (1)
  - Adverse event [None]
